FAERS Safety Report 19792774 (Version 2)
Quarter: 2021Q3

REPORT INFORMATION
  Report Type: Spontaneous
  Country: CN (occurrence: CN)
  Receive Date: 20210906
  Receipt Date: 20210924
  Transmission Date: 20211014
  Serious: Yes (Death, Hospitalization)
  Sender: FDA-Public Use
  Company Number: CN-ROCHE-2905807

PATIENT
  Age: 45 Year
  Sex: Female

DRUGS (3)
  1. GAVRETO [Suspect]
     Active Substance: PRALSETINIB
     Route: 048
     Dates: end: 20210825
  2. GAVRETO [Suspect]
     Active Substance: PRALSETINIB
     Dosage: GASTROENTERAL USE
     Route: 048
     Dates: start: 20210729
  3. GAVRETO [Suspect]
     Active Substance: PRALSETINIB
     Indication: RET GENE MUTATION
     Route: 048
     Dates: start: 20210728, end: 20210729

REACTIONS (9)
  - Trismus [Unknown]
  - Poor quality sleep [Unknown]
  - Oculogyric crisis [Unknown]
  - Hypertension [Not Recovered/Not Resolved]
  - Loss of consciousness [Unknown]
  - Weight decreased [Unknown]
  - Disease progression [Fatal]
  - Disturbance in attention [Unknown]
  - Coma [Unknown]

NARRATIVE: CASE EVENT DATE: 20210729
